FAERS Safety Report 9775574 (Version 3)
Quarter: 2014Q1

REPORT INFORMATION
  Report Type: Spontaneous
  Country: US (occurrence: US)
  Receive Date: 20131220
  Receipt Date: 20140318
  Transmission Date: 20141002
  Serious: No
  Sender: FDA-Public Use
  Company Number: US-GALDERMA-US13003731

PATIENT
  Age: 49 Year
  Sex: Female

DRUGS (4)
  1. MIRVASO (BRIMONIDINE) TOPICAL GEL, 0.33% [Suspect]
     Dosage: 0.33%
     Route: 061
     Dates: start: 20131001, end: 20131003
  2. BIONECT (HYALURONIC ACID SODIUM SALT) 2% GEL [Concomitant]
     Route: 061
     Dates: start: 20131001
  3. ELTA PHYSICAL CLEAR SPF [Concomitant]
     Route: 061
  4. GENTLE CLEANSER [Concomitant]
     Route: 061

REACTIONS (8)
  - Eczema [Unknown]
  - Swelling face [Recovered/Resolved]
  - Dry skin [Recovered/Resolved]
  - Pruritus [Recovered/Resolved]
  - Condition aggravated [Recovered/Resolved]
  - Pain of skin [Recovered/Resolved]
  - Dermatitis [Recovered/Resolved]
  - Flushing [Recovered/Resolved]
